FAERS Safety Report 12700949 (Version 1)
Quarter: 2016Q3

REPORT INFORMATION
  Report Type: Spontaneous
  Country: US (occurrence: None)
  Receive Date: 20160830
  Receipt Date: 20160830
  Transmission Date: 20161109
  Serious: Yes (Other)
  Sender: FDA-Public Use
  Company Number: None

PATIENT
  Age: 26 Year
  Sex: Female
  Weight: 63.5 kg

DRUGS (4)
  1. AMPHETAMINE/DEXTROAMPHETAMINE ER, 20 MG ACTA [Suspect]
     Active Substance: AMPHETAMINE ASPARTATE\AMPHETAMINE SULFATE\DEXTROAMPHETAMINE SACCHARATE\DEXTROAMPHETAMINE SULFATE
     Indication: ATTENTION DEFICIT/HYPERACTIVITY DISORDER
     Dosage: 30 CAPSULE(S) IN THE MORNING TAKEN BY MOUTH
     Route: 048
     Dates: start: 20160825, end: 20160826
  2. AMPHETAMINE/DEXTROAMPHETAMINE ER, 20 MG ACTA [Suspect]
     Active Substance: AMPHETAMINE ASPARTATE\AMPHETAMINE SULFATE\DEXTROAMPHETAMINE SACCHARATE\DEXTROAMPHETAMINE SULFATE
     Indication: DEPRESSION
     Dosage: 30 CAPSULE(S) IN THE MORNING TAKEN BY MOUTH
     Route: 048
     Dates: start: 20160825, end: 20160826
  3. VISTARIL [Concomitant]
     Active Substance: HYDROXYZINE PAMOATE
  4. ADDER ALL XR [Concomitant]

REACTIONS (14)
  - Anxiety [None]
  - Anger [None]
  - Mental disorder [None]
  - Product colour issue [None]
  - Head discomfort [None]
  - Panic attack [None]
  - Tremor [None]
  - Product formulation issue [None]
  - Hypertension [None]
  - Depression [None]
  - Heart rate irregular [None]
  - Vision blurred [None]
  - Nervousness [None]
  - Drug ineffective [None]

NARRATIVE: CASE EVENT DATE: 20160826
